FAERS Safety Report 5842911-6 (Version None)
Quarter: 2008Q3

REPORT INFORMATION
  Report Type: 
  Country: None (occurrence: None)
  Receive Date: 20080813
  Receipt Date: 20080811
  Transmission Date: 20090109
  Serious: Yes (Hospitalization, Other)
  Sender: FDA-Public Use
  Company Number: AU-BRISTOL-MYERS SQUIBB COMPANY-14296586

PATIENT
  Age: 53 Year
  Sex: Male

DRUGS (3)
  1. METOPROLOL TARTRATE [Suspect]
     Indication: HYPERTENSION
  2. BUPROPION HCL [Interacting]
     Indication: EX-TOBACCO USER
  3. PAROXETINE HCL [Interacting]
     Indication: DEPRESSION

REACTIONS (3)
  - ACUTE CORONARY SYNDROME [None]
  - DRUG INTERACTION [None]
  - SINUS BRADYCARDIA [None]
